FAERS Safety Report 23529472 (Version 1)
Quarter: 2024Q1

REPORT INFORMATION
  Report Type: Spontaneous
  Country: US (occurrence: US)
  Receive Date: 20240216
  Receipt Date: 20240216
  Transmission Date: 20240409
  Serious: No
  Sender: FDA-Public Use
  Company Number: CID000000000042635

PATIENT
  Age: 62 Year
  Sex: Female

DRUGS (1)
  1. BUPRENORPHINE [Suspect]
     Active Substance: BUPRENORPHINE
     Route: 062

REACTIONS (7)
  - Application site reaction [Unknown]
  - Scab [Unknown]
  - Adverse event [Unknown]
  - Product quality issue [Unknown]
  - Product dose omission issue [Unknown]
  - Skin exfoliation [Unknown]
  - Application site erythema [Unknown]
